FAERS Safety Report 6775383-8 (Version None)
Quarter: 2010Q2

REPORT INFORMATION
  Report Type: 
  Country: None (occurrence: None)
  Receive Date: 20100617
  Receipt Date: 20100609
  Transmission Date: 20101027
  Serious: Yes (Hospitalization)
  Sender: FDA-Public Use
  Company Number: FR-PFIZER INC-2010071984

PATIENT
  Age: 90 Year
  Sex: Female

DRUGS (9)
  1. ALDACTONE [Suspect]
     Dosage: 75 MG, 1X/DAY
     Route: 048
  2. ACTOS [Suspect]
     Dosage: 30 MG, 1X/DAY
     Route: 048
  3. CARDENSIEL [Suspect]
     Dosage: 2.5 MG, UNK
     Route: 048
  4. LEVOTHYROXINE SODIUM [Suspect]
     Dosage: 100 UG, 1X/DAY
     Route: 048
  5. COVERSYL [Suspect]
     Dosage: UNK MG, UNK
     Route: 048
  6. AMAREL [Suspect]
     Dosage: 2 MG, UNK
     Route: 048
  7. LASIX [Suspect]
     Dosage: 40 MG, 2X/WEEK
     Route: 048
  8. DIFFU K [Suspect]
     Dosage: 1 DF, 1X/DAY
     Route: 048
  9. PREVISCAN [Suspect]
     Dosage: 15 MG, 1X/DAY
     Route: 048

REACTIONS (1)
  - CARDIAC FAILURE [None]
